FAERS Safety Report 22873025 (Version 4)
Quarter: 2023Q4

REPORT INFORMATION
  Report Type: Spontaneous
  Country: US (occurrence: US)
  Receive Date: 20230828
  Receipt Date: 20231128
  Transmission Date: 20240110
  Serious: Yes (Other)
  Sender: FDA-Public Use
  Company Number: US-ABBVIE-5382611

PATIENT
  Sex: Female

DRUGS (2)
  1. KYBELLA [Suspect]
     Active Substance: DEOXYCHOLIC ACID
     Indication: Fat tissue increased
     Route: 058
  2. BOTOX COSMETIC [Suspect]
     Active Substance: ONABOTULINUMTOXINA
     Indication: Skin cosmetic procedure
     Dosage: TIME INTERVAL: AS NECESSARY: 5 UNITS
     Route: 065

REACTIONS (17)
  - Surgery [Unknown]
  - Facial asymmetry [Unknown]
  - Adverse drug reaction [Unknown]
  - Hypoaesthesia [Unknown]
  - Hypersensitivity [Unknown]
  - Self esteem decreased [Unknown]
  - Papule [Unknown]
  - Pain [Unknown]
  - Adhesion [Unknown]
  - Swelling face [Not Recovered/Not Resolved]
  - Drug hypersensitivity [Unknown]
  - Facial paresis [Unknown]
  - Inappropriate schedule of product administration [Unknown]
  - Injection site pain [Unknown]
  - Injection site papule [Unknown]
  - Injection site scar [Unknown]
  - Off label use [Unknown]
